FAERS Safety Report 9675049 (Version 1)
Quarter: 2013Q4

REPORT INFORMATION
  Report Type: Spontaneous
  Country: DK (occurrence: NL)
  Receive Date: 20131107
  Receipt Date: 20131107
  Transmission Date: 20140711
  Serious: Yes (Hospitalization)
  Sender: FDA-Public Use
  Company Number: NL-FRI-1000050796

PATIENT
  Age: 60 Year
  Sex: Female
  Weight: 70 kg

DRUGS (4)
  1. CITALOPRAM [Suspect]
     Indication: ANXIETY DISORDER
     Dosage: 40 MG
     Route: 048
     Dates: start: 199612
  2. ZYPREXA [Suspect]
     Indication: PANIC DISORDER
     Dosage: 1.25 MG
     Route: 048
     Dates: start: 200803, end: 201212
  3. METOPROLOL [Suspect]
     Dosage: 50 MG
     Route: 048
     Dates: start: 200809, end: 201304
  4. METOPROLOL [Suspect]
     Dosage: 25 MG
     Route: 048
     Dates: start: 201304

REACTIONS (1)
  - Petit mal epilepsy [Unknown]
